FAERS Safety Report 21305162 (Version 1)
Quarter: 2022Q3

REPORT INFORMATION
  Report Type: Spontaneous
  Country: US (occurrence: US)
  Receive Date: 20220907
  Receipt Date: 20220907
  Transmission Date: 20221026
  Serious: No
  Sender: FDA-Public Use
  Company Number: US-PERRIGO-22US001346

PATIENT
  Age: 71 Year
  Sex: Female
  Weight: 49.887 kg

DRUGS (2)
  1. MINOXIDIL [Suspect]
     Active Substance: MINOXIDIL
     Indication: Alopecia
     Dosage: 1 ML, BID
     Route: 061
     Dates: start: 202110, end: 202111
  2. MINOXIDIL [Suspect]
     Active Substance: MINOXIDIL
     Dosage: LESS THAN 1 ML, BID
     Route: 061
     Dates: start: 202111

REACTIONS (1)
  - Underdose [Not Recovered/Not Resolved]

NARRATIVE: CASE EVENT DATE: 20211101
